FAERS Safety Report 24788663 (Version 1)
Quarter: 2024Q4

REPORT INFORMATION
  Report Type: Spontaneous
  Country: GB (occurrence: GB)
  Receive Date: 20241230
  Receipt Date: 20241230
  Transmission Date: 20250115
  Serious: Yes (Other)
  Sender: BOEHRINGER INGELHEIM
  Company Number: None

PATIENT
  Age: 42 Year
  Sex: Female

DRUGS (2)
  1. LINAGLIPTIN [Suspect]
     Active Substance: LINAGLIPTIN
     Indication: Product used for unknown indication
     Dosage: DAILY DOSE: 5 MILLIGRAM(S)
  2. Garbapentin [Concomitant]
     Indication: Product used for unknown indication

REACTIONS (7)
  - Depression [Recovering/Resolving]
  - Obsessive-compulsive symptom [Unknown]
  - Hunger [Recovering/Resolving]
  - Dry mouth [Not Recovered/Not Resolved]
  - Headache [Not Recovered/Not Resolved]
  - Ageusia [Recovering/Resolving]
  - Cough [Not Recovered/Not Resolved]
